FAERS Safety Report 5120373-4 (Version None)
Quarter: 2006Q4

REPORT INFORMATION
  Report Type: 
  Country: None (occurrence: None)
  Receive Date: 20061002
  Receipt Date: 20060918
  Transmission Date: 20070319
  Serious: Yes (Other)
  Sender: FDA-Public Use
  Company Number: GB200609003875

PATIENT
  Age: 31 Year
  Sex: Male

DRUGS (1)
  1. ZYPREXA [Suspect]
     Indication: DELUSIONAL DISORDER, PERSECUTORY TYPE
     Dosage: 20 MG, DAILY (1/D)
     Dates: start: 20000101

REACTIONS (1)
  - PULMONARY EMBOLISM [None]
